FAERS Safety Report 7786023-3 (Version None)
Quarter: 2011Q3

REPORT INFORMATION
  Report Type: 
  Country: None (occurrence: None)
  Receive Date: 20110929
  Receipt Date: 20110923
  Transmission Date: 20111222
  Serious: Yes (Other)
  Sender: FDA-Public Use
  Company Number: GR-PFIZER INC-2011226999

PATIENT
  Age: 63 Year
  Sex: Female

DRUGS (5)
  1. SUNITINIB MALATE [Suspect]
     Dosage: 37.5 MG, UNK
  2. HYDROCHLOROTHIAZIDE [Concomitant]
  3. SUNITINIB MALATE [Suspect]
     Indication: RENAL CANCER
     Dosage: 50 MG, UNK DAILY ON A 4-WEEKS ON-/2-WEEKS OFF-SCHEDULE
     Route: 048
  4. SUNITINIB MALATE [Suspect]
     Dosage: 35 MG, UNK
  5. LEVOTHYROXINE SODIUM [Concomitant]

REACTIONS (4)
  - SKIN TOXICITY [None]
  - LEUKOCYTOCLASTIC VASCULITIS [None]
  - HYPERTENSION [None]
  - HYPOTHYROIDISM [None]
